FAERS Safety Report 4489493-1 (Version None)
Quarter: 2004Q4

REPORT INFORMATION
  Report Type: 
  Country: None (occurrence: None)
  Receive Date: 20041101
  Receipt Date: 20041027
  Transmission Date: 20050328
  Serious: Yes (Disabling, Other)
  Sender: FDA-Public Use
  Company Number: 200414110FR

PATIENT
  Age: 48 Year
  Sex: Male

DRUGS (5)
  1. LANTUS [Suspect]
     Indication: DIABETES MELLITUS INSULIN-DEPENDENT
     Route: 058
     Dates: start: 20030701
  2. HUMALOG [Concomitant]
     Indication: DIABETES MELLITUS INSULIN-DEPENDENT
     Route: 058
     Dates: start: 20030701
  3. TAHOR [Concomitant]
     Route: 048
  4. KARDEGIC [Concomitant]
     Route: 048
  5. HYZAAR [Concomitant]
     Route: 048

REACTIONS (1)
  - MYALGIA [None]
